FAERS Safety Report 14739979 (Version 1)
Quarter: 2018Q2

REPORT INFORMATION
  Report Type: Spontaneous
  Country: US (occurrence: US)
  Receive Date: 20180404
  Receipt Date: 20180404
  Transmission Date: 20180711
  Serious: Yes (Hospitalization)
  Sender: FDA-Public Use
  Company Number: None

PATIENT
  Sex: Male

DRUGS (7)
  1. ENBREL [Suspect]
     Active Substance: ETANERCEPT
     Indication: RHEUMATOID ARTHRITIS
     Route: 058
     Dates: start: 20170601
  2. FISH OIL [Concomitant]
     Active Substance: FISH OIL
  3. CINNAMON. [Concomitant]
     Active Substance: CINNAMON
  4. VITAMIN C [Concomitant]
     Active Substance: ASCORBIC ACID
  5. XANAX [Concomitant]
     Active Substance: ALPRAZOLAM
  6. CIPROFLOXACN [Concomitant]
     Active Substance: CIPROFLOXACIN
  7. HYDROCODONE [Concomitant]
     Active Substance: HYDROCODONE

REACTIONS (5)
  - Headache [None]
  - Colitis [None]
  - Diarrhoea [None]
  - Tenderness [None]
  - Nausea [None]
